FAERS Safety Report 11388132 (Version 2)
Quarter: 2015Q3

REPORT INFORMATION
  Report Type: Report from Study
  Country: US (occurrence: US)
  Receive Date: 20150817
  Receipt Date: 20150921
  Transmission Date: 20151125
  Serious: Yes (Hospitalization, Other)
  Sender: FDA-Public Use
  Company Number: US-GILEAD-2015-0167681

PATIENT
  Age: 65 Year
  Sex: Female

DRUGS (2)
  1. AMBRISENTAN [Suspect]
     Active Substance: AMBRISENTAN
     Indication: SCLERODERMA
     Dosage: 10 MG, QD
     Route: 065
  2. ADEMPAS [Concomitant]
     Active Substance: RIOCIGUAT

REACTIONS (2)
  - Cardiac failure congestive [Not Recovered/Not Resolved]
  - Pulmonary hypertension [Not Recovered/Not Resolved]
